FAERS Safety Report 21083409 (Version 1)
Quarter: 2022Q3

REPORT INFORMATION
  Report Type: Spontaneous
  Country: US (occurrence: None)
  Receive Date: 20220714
  Receipt Date: 20220714
  Transmission Date: 20221027
  Serious: No
  Sender: FDA-Public Use
  Company Number: None

PATIENT
  Age: 88 Year
  Sex: Female
  Weight: 53.98 kg

DRUGS (1)
  1. OTREXUP [Suspect]
     Active Substance: METHOTREXATE
     Indication: Rheumatoid arthritis
     Dosage: OTHER QUANTITY : 150MG (0.4ML);?FREQUENCY : AS DIRECTED;?
     Route: 058
     Dates: start: 201902

REACTIONS (2)
  - Hip fracture [None]
  - Intentional dose omission [None]
